FAERS Safety Report 20171000 (Version 11)
Quarter: 2025Q4

REPORT INFORMATION
  Report Type: Report from Study
  Country: CA (occurrence: CA)
  Receive Date: 20211210
  Receipt Date: 20251104
  Transmission Date: 20260118
  Serious: Yes (Hospitalization, Other)
  Sender: TAKEDA
  Company Number: CA-TAKEDA-2021TUS037401

PATIENT
  Age: 53 Year
  Sex: Female
  Weight: 59 kg

DRUGS (22)
  1. TEDUGLUTIDE [Suspect]
     Active Substance: TEDUGLUTIDE
     Indication: Short-bowel syndrome
     Dosage: 1.5 MILLIGRAM, QD
     Dates: start: 20210607
  2. TEDUGLUTIDE [Suspect]
     Active Substance: TEDUGLUTIDE
     Dosage: UNK, QD
  3. TEDUGLUTIDE [Suspect]
     Active Substance: TEDUGLUTIDE
     Dosage: 1.5 MILLIGRAM, QD
  4. TEDUGLUTIDE [Suspect]
     Active Substance: TEDUGLUTIDE
  5. COVID-19 VACCINE NOS [Suspect]
     Active Substance: COVID-19 VACCINE
     Indication: COVID-19 immunisation
     Dosage: UNK
  6. ENTYVIO [Concomitant]
     Active Substance: VEDOLIZUMAB
     Indication: Product used for unknown indication
     Dosage: UNK
  7. SODIUM CHLORIDE [Concomitant]
     Active Substance: SODIUM CHLORIDE
     Indication: Product used for unknown indication
     Dosage: 1500 MILLILITER, 3/WEEK
  8. SODIUM CHLORIDE [Concomitant]
     Active Substance: SODIUM CHLORIDE
     Dosage: 1800 MILLILITER, 3/WEEK
  9. Ostomed [Concomitant]
     Indication: Product used for unknown indication
     Dosage: UNK
  10. Ziralton [Concomitant]
     Indication: Product used for unknown indication
     Dosage: 20 MILLIGRAM, QD
  11. PANTOPRAZOLE SODIUM [Concomitant]
     Active Substance: PANTOPRAZOLE SODIUM
     Indication: Product used for unknown indication
     Dosage: 40 MILLIGRAM, BID
  12. VITAMIN A [Concomitant]
     Active Substance: VITAMIN A
     Indication: Product used for unknown indication
     Dosage: UNK, QD
  13. VITAMIN D [Concomitant]
     Active Substance: VITAMIN D NOS
     Indication: Product used for unknown indication
     Dosage: UNK, 2/WEEK
  14. FENTANYL [Concomitant]
     Active Substance: FENTANYL
     Indication: Product used for unknown indication
     Dosage: 25 MILLIGRAM, 1/WEEK
  15. FENTANYL [Concomitant]
     Active Substance: FENTANYL
     Dosage: 25 MICROGRAM, Q72H
  16. TYLENOL [Concomitant]
     Active Substance: ACETAMINOPHEN
     Indication: Product used for unknown indication
     Dosage: 160 MILLIGRAM
  17. CAFFEINE [Concomitant]
     Active Substance: CAFFEINE
     Indication: Product used for unknown indication
     Dosage: 8 MILLIGRAM
  18. CODEINE [Concomitant]
     Active Substance: CODEINE
     Indication: Product used for unknown indication
     Dosage: 5 MILLILITER
  19. B12 [Concomitant]
     Indication: Product used for unknown indication
     Dosage: UNK UNK, Q2WEEKS
  20. INNOHEP [Concomitant]
     Active Substance: TINZAPARIN SODIUM
     Indication: Product used for unknown indication
     Dosage: 12000 INTERNATIONAL UNIT, QD
  21. CETIRIZINE HYDROCHLORIDE [Concomitant]
     Active Substance: CETIRIZINE HYDROCHLORIDE
     Dosage: UNK
  22. Cyanocobalamin zinc tannate [Concomitant]
     Dosage: UNK

REACTIONS (39)
  - Abdominal discomfort [Unknown]
  - Gastrointestinal sounds abnormal [Not Recovered/Not Resolved]
  - Fatigue [Not Recovered/Not Resolved]
  - Discomfort [Recovered/Resolved]
  - Eructation [Recovered/Resolved]
  - Rhinorrhoea [Recovered/Resolved]
  - Thirst [Recovered/Resolved]
  - Skin warm [Unknown]
  - Gastrointestinal stoma output increased [Not Recovered/Not Resolved]
  - Pain [Not Recovered/Not Resolved]
  - Feeling abnormal [Unknown]
  - Peripheral swelling [Recovering/Resolving]
  - Abnormal faeces [Not Recovered/Not Resolved]
  - Diarrhoea [Unknown]
  - Back pain [Not Recovered/Not Resolved]
  - Somnolence [Not Recovered/Not Resolved]
  - Renal neoplasm [Unknown]
  - Pallor [Not Recovered/Not Resolved]
  - Nasal discomfort [Unknown]
  - Non-pitting oedema [Unknown]
  - Vaccination site pain [Unknown]
  - Product dose omission issue [Unknown]
  - Oedema [Unknown]
  - Pancreatic disorder [Not Recovered/Not Resolved]
  - Sleep disorder [Unknown]
  - Anxiety [Unknown]
  - Oedema peripheral [Not Recovered/Not Resolved]
  - Vomiting [Recovered/Resolved]
  - Nausea [Recovered/Resolved]
  - Dyspnoea [Not Recovered/Not Resolved]
  - Cholelithiasis [Not Recovered/Not Resolved]
  - Abdominal pain lower [Not Recovered/Not Resolved]
  - Abdominal pain [Not Recovered/Not Resolved]
  - Renal cancer [Not Recovered/Not Resolved]
  - Pollakiuria [Unknown]
  - Blood potassium decreased [Unknown]
  - Blood iron decreased [Unknown]
  - Weight fluctuation [Unknown]
  - Injection site pain [Not Recovered/Not Resolved]

NARRATIVE: CASE EVENT DATE: 20210608
